FAERS Safety Report 8974227 (Version 1)
Quarter: 2012Q4

REPORT INFORMATION
  Report Type: Spontaneous
  Country: GB (occurrence: None)
  Receive Date: 20121212
  Receipt Date: 20121212
  Transmission Date: 20130627
  Serious: Yes (Life-Threatening, Hospitalization, Other)
  Sender: FDA-Public Use
  Company Number: GER/UKI/12/0026950

PATIENT
  Age: 88 Year
  Sex: Male
  Weight: 54.2 kg

DRUGS (9)
  1. SERTRALINE (SERTRALINE) (SERTRALINE) [Suspect]
     Indication: DEPRESSION
     Route: 048
     Dates: start: 20120821, end: 20121009
  2. SERTRALINE (SERTRALINE) (SERTRALINE) [Suspect]
     Indication: SUICIDAL IDEATION
     Route: 048
     Dates: start: 20120821, end: 20121009
  3. TRIMETHOPRIM [Suspect]
     Route: 048
     Dates: start: 20120915, end: 20120918
  4. TRIMETHOPRIM [Suspect]
     Route: 048
     Dates: start: 20120920, end: 20120928
  5. AMLODIPINE (AMLODIPINE) [Concomitant]
  6. CLOPIDOGREL (CLOPIDOGREL) [Concomitant]
  7. FOLIC ACID (FOLIC ACID) [Concomitant]
  8. TAMSULOSIN (TAMSULOSIN) [Concomitant]
  9. TEMAZEPAM (TEMAZEPAM) [Concomitant]

REACTIONS (4)
  - Agranulocytosis [None]
  - Infection [None]
  - Neutropenia [None]
  - Sepsis [None]
